FAERS Safety Report 7357400-X (Version None)
Quarter: 2011Q1

REPORT INFORMATION
  Report Type: 
  Country: None (occurrence: None)
  Receive Date: 20110307
  Receipt Date: 20110228
  Transmission Date: 20110831
  Serious: Yes (Other)
  Sender: FDA-Public Use
  Company Number: 201110179

PATIENT
  Age: 42 Year
  Sex: Female

DRUGS (1)
  1. LIORESAL [Suspect]
     Indication: MUSCLE SPASTICITY
     Dosage: 1200 MCG, DAILY, INTRATHECAL
     Route: 037

REACTIONS (1)
  - IMPLANT SITE EROSION [None]
